FAERS Safety Report 10312771 (Version 2)
Quarter: 2014Q3

REPORT INFORMATION
  Report Type: Spontaneous
  Country: FR (occurrence: None)
  Receive Date: 20140716
  Receipt Date: 20140723
  Transmission Date: 20150326
  Serious: Yes (Hospitalization)
  Sender: FDA-Public Use
  Company Number: FK201402682

PATIENT
  Age: 35 Year
  Sex: Female

DRUGS (5)
  1. GENTAMICINE PANPHARMA [Suspect]
     Active Substance: GENTAMICIN
     Indication: BACK PAIN
     Dosage: INTRAVENOUS (NOT OTHERWISE SPECIFIED)
     Route: 042
     Dates: start: 20130930, end: 20130930
  2. OFLOCET (OFLOXACIN) [Concomitant]
     Active Substance: OFLOXACIN
  3. BACTRIM [Suspect]
     Active Substance: SULFAMETHOXAZOLE\TRIMETHOPRIM
     Indication: CYSTITIS
     Route: 048
     Dates: start: 20130924, end: 20130930
  4. ORELOX (CEFPODOXIME PROXETIL) [Concomitant]
     Active Substance: CEFPODOXIME
  5. CEFTRIAXON KABI [Suspect]
     Active Substance: CEFTRIAXONE
     Indication: CYSTITIS
     Dosage: INTRAVENOUS (NOT OTHERWISE SPECIFIED)
     Route: 042
     Dates: start: 20130924, end: 20130930

REACTIONS (4)
  - Rash maculo-papular [None]
  - Hyperthermia [None]
  - Drug hypersensitivity [None]
  - Rash [None]

NARRATIVE: CASE EVENT DATE: 20130928
